FAERS Safety Report 5104818-1 (Version None)
Quarter: 2006Q3

REPORT INFORMATION
  Report Type: 
  Country: None (occurrence: None)
  Receive Date: 20060911
  Receipt Date: 20060911
  Transmission Date: 20061208
  Serious: Yes (Other)
  Sender: FDA-Public Use
  Company Number: None

PATIENT
  Age: 77 Year
  Sex: Male
  Weight: 66.9 kg

DRUGS (1)
  1. HEPARIN [Suspect]
     Indication: THROMBOSIS PROPHYLAXIS
     Dosage: 5000 UNITS   EVERY 12 HOURS  INTRACAVERN
     Route: 017
     Dates: start: 20060613, end: 20060614

REACTIONS (1)
  - HEPARIN-INDUCED THROMBOCYTOPENIA [None]
